FAERS Safety Report 25389127 (Version 3)
Quarter: 2025Q3

REPORT INFORMATION
  Report Type: Report from Study
  Country: CA (occurrence: CA)
  Receive Date: 20250603
  Receipt Date: 20250809
  Transmission Date: 20251021
  Serious: Yes (Hospitalization, Other)
  Sender: ALEXION PHARMACEUTICALS
  Company Number: CA-AstraZeneca-CH-00880598A

PATIENT
  Sex: Male
  Weight: 97.959 kg

DRUGS (1)
  1. ACALABRUTINIB [Suspect]
     Active Substance: ACALABRUTINIB
     Indication: Chronic lymphocytic leukaemia
     Dosage: 100 MILLIGRAM, BID
     Dates: start: 20211204

REACTIONS (4)
  - Hip fracture [Unknown]
  - Pneumonia [Recovered/Resolved]
  - Fall [Unknown]
  - Bone density abnormal [Unknown]
